FAERS Safety Report 9319618 (Version 5)
Quarter: 2016Q1

REPORT INFORMATION
  Report Type: Spontaneous
  Country: US (occurrence: US)
  Receive Date: 20130530
  Receipt Date: 20160324
  Transmission Date: 20160526
  Serious: Yes (Hospitalization, Other)
  Sender: FDA-Public Use
  Company Number: US-GLAXOSMITHKLINE-A1013567A

PATIENT
  Age: 55 Year
  Sex: Female

DRUGS (10)
  1. REVATIO [Concomitant]
     Active Substance: SILDENAFIL CITRATE
  2. TRACLEER [Concomitant]
     Active Substance: BOSENTAN
  3. VENLAFAXINE [Concomitant]
     Active Substance: VENLAFAXINE HYDROCHLORIDE
  4. FLOLAN [Suspect]
     Active Substance: EPOPROSTENOL SODIUM
     Dosage: 28.5 NG/KG/MIN, CONTINUOUSLY
     Route: 042
     Dates: start: 20090522
  5. COUMADIN [Concomitant]
     Active Substance: WARFARIN SODIUM
  6. LASIX [Concomitant]
     Active Substance: FUROSEMIDE
  7. FLOLAN [Suspect]
     Active Substance: EPOPROSTENOL SODIUM
     Indication: PULMONARY ARTERIAL HYPERTENSION
     Dosage: 28.5 UNK, CO
     Route: 042
     Dates: start: 20090522
  8. FLOLAN [Suspect]
     Active Substance: EPOPROSTENOL SODIUM
     Dosage: UNK
     Dates: start: 20090522
  9. PERCOCET [Concomitant]
     Active Substance: ACETAMINOPHEN\OXYCODONE HYDROCHLORIDE
  10. MS CONTIN [Concomitant]
     Active Substance: MORPHINE SULFATE

REACTIONS (5)
  - Dizziness [Unknown]
  - Diarrhoea [Unknown]
  - Hospitalisation [Unknown]
  - Pneumonia [Unknown]
  - Vascular injury [Unknown]

NARRATIVE: CASE EVENT DATE: 20160220
